FAERS Safety Report 5360679-7 (Version None)
Quarter: 2007Q2

REPORT INFORMATION
  Report Type: 
  Country: None (occurrence: None)
  Receive Date: 20070618
  Receipt Date: 20070607
  Transmission Date: 20071010
  Serious: Yes (Other)
  Sender: FDA-Public Use
  Company Number: FR-ROCHE-497191

PATIENT
  Age: 56 Year
  Sex: Female
  Weight: 60 kg

DRUGS (6)
  1. COPEGUS [Suspect]
     Indication: HEPATITIS C
     Dosage: UNIT: TABLETS. TWO TABLETS IN THE MORNING AND 3 TABLETS IN THE EVENING.
     Route: 048
     Dates: start: 20070426
  2. PEGASYS [Suspect]
     Indication: HEPATITIS C
     Route: 058
     Dates: start: 20070426
  3. FONZYLANE [Concomitant]
     Route: 048
  4. OGAST [Concomitant]
     Route: 048
  5. SEROPRAM [Concomitant]
     Indication: DEPRESSION
     Route: 048
  6. DAFLON [Concomitant]
     Route: 048

REACTIONS (1)
  - HYPERBILIRUBINAEMIA [None]
